FAERS Safety Report 14439670 (Version 1)
Quarter: 2018Q1

REPORT INFORMATION
  Report Type: Spontaneous
  Country: PT (occurrence: PT)
  Receive Date: 20180125
  Receipt Date: 20180125
  Transmission Date: 20180509
  Serious: Yes (Hospitalization, Other)
  Sender: FDA-Public Use
  Company Number: PT-JNJFOC-20180125849

PATIENT
  Age: 56 Year

DRUGS (1)
  1. USTEKINUMAB [Suspect]
     Active Substance: USTEKINUMAB
     Indication: CROHN^S DISEASE
     Route: 058
     Dates: start: 201602

REACTIONS (5)
  - Surgery [Unknown]
  - Hospitalisation [Unknown]
  - Incorrect route of drug administration [Unknown]
  - Off label use [Unknown]
  - Inappropriate schedule of drug administration [Unknown]
